FAERS Safety Report 18092347 (Version 1)
Quarter: 2020Q3

REPORT INFORMATION
  Report Type: Spontaneous
  Country: PT (occurrence: PT)
  Receive Date: 20200730
  Receipt Date: 20200730
  Transmission Date: 20201103
  Serious: Yes (Other)
  Sender: FDA-Public Use
  Company Number: NVSC2020PT193428

PATIENT
  Age: 5 Year
  Sex: Female

DRUGS (2)
  1. NORETHISTERONE [Suspect]
     Active Substance: NORETHINDRONE
     Indication: ACUTE LYMPHOCYTIC LEUKAEMIA
     Dosage: UNK
     Route: 065
  2. ESTRADIOL. [Suspect]
     Active Substance: ESTRADIOL
     Indication: ACUTE LYMPHOCYTIC LEUKAEMIA
     Dosage: 1 MG, QD
     Route: 065

REACTIONS (2)
  - Thrombosis [Unknown]
  - Off label use [Unknown]
